FAERS Safety Report 5085079-9 (Version None)
Quarter: 2006Q3

REPORT INFORMATION
  Report Type: 
  Country: None (occurrence: None)
  Receive Date: 20060816
  Receipt Date: 20051215
  Transmission Date: 20061208
  Serious: Yes (Death)
  Sender: FDA-Public Use
  Company Number: 8012705

PATIENT
  Age: 68 Year
  Sex: Male
  Weight: 86 kg

DRUGS (9)
  1. LEVETIRACETAM [Suspect]
     Indication: EPILEPSY
     Dosage: 500 MG /D
     Dates: start: 20030604, end: 20030617
  2. LEVETIRACETAM [Suspect]
     Indication: EPILEPSY
     Dosage: 1000 MG /D
     Dates: start: 20030618, end: 20051007
  3. AMARYL [Concomitant]
  4. NORVASC /00972401/ [Concomitant]
  5. SELEKTINE [Concomitant]
  6. METFORMIN HCL [Concomitant]
  7. LOPRESOR /00376902/ [Concomitant]
  8. TRIAMTERENE [Concomitant]
  9. XATRAL /00975301/ [Concomitant]

REACTIONS (7)
  - AORTIC STENOSIS [None]
  - BENIGN PROSTATIC HYPERPLASIA [None]
  - CARDIAC ARREST [None]
  - CARDIAC FAILURE [None]
  - DYSURIA [None]
  - HAEMATURIA [None]
  - SUDDEN DEATH [None]
